FAERS Safety Report 8378380-4 (Version None)
Quarter: 2012Q2

REPORT INFORMATION
  Report Type: 
  Country: None (occurrence: None)
  Receive Date: 20120522
  Receipt Date: 20120518
  Transmission Date: 20120825
  Serious: Yes (Other)
  Sender: FDA-Public Use
  Company Number: KP-ROXANE LABORATORIES, INC.-2012-RO-01272RO

PATIENT
  Age: 60 Year
  Sex: Male

DRUGS (3)
  1. MYCOPHENOLATE MOFETIL [Suspect]
     Indication: LIVER TRANSPLANT
  2. GANCICLOVIR [Suspect]
     Indication: LIVER TRANSPLANT
  3. TACROLIMUS [Suspect]
     Indication: LIVER TRANSPLANT

REACTIONS (2)
  - LARGE INTESTINAL ULCER [None]
  - THROMBOTIC MICROANGIOPATHY [None]
